FAERS Safety Report 17667528 (Version 2)
Quarter: 2020Q2

REPORT INFORMATION
  Report Type: Spontaneous
  Country: FR (occurrence: FR)
  Receive Date: 20200414
  Receipt Date: 20200421
  Transmission Date: 20200713
  Serious: Yes (Life-Threatening)
  Sender: FDA-Public Use
  Company Number: FR-JNJFOC-20200407697

PATIENT
  Sex: Male
  Weight: 90 kg

DRUGS (8)
  1. STELARA [Suspect]
     Active Substance: USTEKINUMAB
     Indication: SPONDYLITIS
     Dosage: 1 TIME EVERY 3 MONTHS
     Route: 058
     Dates: start: 20180118, end: 201911
  2. COSENTYX [Suspect]
     Active Substance: SECUKINUMAB
     Indication: PSORIATIC ARTHROPATHY
  3. IMETH                              /00113801/ [Suspect]
     Active Substance: METHOTREXATE
     Indication: SPONDYLITIS
     Route: 048
     Dates: start: 2012
  4. COSENTYX [Suspect]
     Active Substance: SECUKINUMAB
     Indication: SPONDYLITIS
     Route: 065
     Dates: start: 20161026, end: 201801
  5. REMICADE [Suspect]
     Active Substance: INFLIXIMAB
     Indication: SPONDYLITIS
     Route: 042
     Dates: start: 201501, end: 201610
  6. IMETH                              /00113801/ [Suspect]
     Active Substance: METHOTREXATE
     Indication: PSORIATIC ARTHROPATHY
     Dates: start: 201208
  7. REMICADE [Suspect]
     Active Substance: INFLIXIMAB
     Indication: PSORIATIC ARTHROPATHY
  8. STELARA [Suspect]
     Active Substance: USTEKINUMAB
     Indication: PSORIATIC ARTHROPATHY

REACTIONS (2)
  - Swelling [Recovered/Resolved]
  - Thyroid cancer [Recovering/Resolving]

NARRATIVE: CASE EVENT DATE: 2016
